FAERS Safety Report 9955771 (Version 2)
Quarter: 2014Q1

REPORT INFORMATION
  Report Type: Spontaneous
  Country: US (occurrence: US)
  Receive Date: 20140304
  Receipt Date: 20140324
  Transmission Date: 20141002
  Serious: Yes (Other)
  Sender: FDA-Public Use
  Company Number: US-PFIZER INC-2014060068

PATIENT
  Age: 61 Year
  Sex: Male
  Weight: 95 kg

DRUGS (3)
  1. XALATAN [Suspect]
     Indication: OPEN ANGLE GLAUCOMA
     Dosage: 1 GTT, DAILY(1 DROP IN EACH EYE DAILY)
     Route: 047
     Dates: end: 200603
  2. COSOPT [Concomitant]
     Indication: EYE DISORDER
     Dosage: 1 GTT, 2X/DAY (1 DROP IN EACH EYE 2X/DAY)
     Route: 047
  3. ALPHAGAN [Concomitant]
     Indication: EYE DISORDER
     Dosage: 1 GTT, 3X/DAY (1 DROP IN EACH EYE 3X/DAY)
     Route: 047

REACTIONS (1)
  - Myocardial infarction [Recovered/Resolved]
